FAERS Safety Report 8682066 (Version 4)
Quarter: 2013Q3

REPORT INFORMATION
  Report Type: Other
  Country: US (occurrence: US)
  Receive Date: 20120725
  Receipt Date: 20130829
  Transmission Date: 20140515
  Serious: Yes (Other)
  Sender: FDA-Public Use
  Company Number: US-SHIRE-ALL1-2012-03490

PATIENT
  Age: 53 Year
  Sex: Male

DRUGS (1)
  1. VPRIV [Suspect]
     Indication: GAUCHER^S DISEASE
     Dosage: 7200 IU, OTHER (BIMONTHLY)
     Route: 041
     Dates: start: 20100608

REACTIONS (4)
  - Pathological fracture [Not Recovered/Not Resolved]
  - Impaired healing [Not Recovered/Not Resolved]
  - Bone atrophy [Not Recovered/Not Resolved]
  - Bone pain [Not Recovered/Not Resolved]
